FAERS Safety Report 6750664-2 (Version None)
Quarter: 2010Q2

REPORT INFORMATION
  Report Type: 
  Country: None (occurrence: None)
  Receive Date: 20100602
  Receipt Date: 20100525
  Transmission Date: 20101027
  Serious: Yes (Hospitalization)
  Sender: FDA-Public Use
  Company Number: US-BIOGENIDEC-2009BI009021

PATIENT
  Age: 57 Year
  Sex: Female
  Weight: 44 kg

DRUGS (2)
  1. AVONEX [Suspect]
     Indication: MULTIPLE SCLEROSIS
     Route: 030
     Dates: start: 20080422
  2. AVONEX [Suspect]
     Route: 030
     Dates: start: 20070927

REACTIONS (1)
  - PNEUMONIA [None]
